FAERS Safety Report 4342236-4 (Version None)
Quarter: 2004Q2

REPORT INFORMATION
  Report Type: 
  Country: None (occurrence: None)
  Receive Date: 20040415
  Receipt Date: 20040401
  Transmission Date: 20050107
  Serious: Yes (Hospitalization)
  Sender: FDA-Public Use
  Company Number: EWC040438734

PATIENT
  Age: 45 Year
  Sex: Female

DRUGS (4)
  1. OLANZAPINE [Suspect]
     Indication: SCHIZOPHRENIA
     Dosage: 20 MG DAY
     Dates: start: 20040308, end: 20040322
  2. MELLERIL (THIORIDAZINE HYDROCHLORIDE) [Concomitant]
  3. LORAZEPAM [Concomitant]
  4. FLURAZEPAM [Concomitant]

REACTIONS (6)
  - AGRANULOCYTOSIS [None]
  - BONE MARROW DEPRESSION [None]
  - CONDITION AGGRAVATED [None]
  - PSYCHOTIC DISORDER [None]
  - PYREXIA [None]
  - SINUSITIS [None]
